FAERS Safety Report 6912187-7 (Version None)
Quarter: 2010Q3

REPORT INFORMATION
  Report Type: 
  Country: None (occurrence: None)
  Receive Date: 20100806
  Receipt Date: 20080220
  Transmission Date: 20110219
  Serious: No
  Sender: FDA-Public Use
  Company Number: US-PFIZER INC-2007101993

PATIENT
  Sex: Female
  Weight: 75 kg

DRUGS (8)
  1. DETROL LA [Suspect]
     Indication: URINARY INCONTINENCE
     Dates: start: 20071109
  2. CYMBALTA [Concomitant]
  3. XANAX [Concomitant]
  4. BUSPAR [Concomitant]
  5. SYNTHROID [Concomitant]
  6. ALBUTEROL [Concomitant]
     Route: 055
  7. MAXZIDE [Concomitant]
     Dosage: 37.5/25MG
  8. VICODIN [Concomitant]
     Dosage: 5/500MG

REACTIONS (2)
  - DRUG EFFECT DECREASED [None]
  - INCORRECT DOSE ADMINISTERED [None]
